FAERS Safety Report 5126024-7 (Version None)
Quarter: 2006Q4

REPORT INFORMATION
  Report Type: 
  Country: None (occurrence: None)
  Receive Date: 20061012
  Receipt Date: 20061004
  Transmission Date: 20070319
  Serious: Yes (Death, Hospitalization)
  Sender: FDA-Public Use
  Company Number: GB-SANOFI-SYNTHELABO-A01200608349

PATIENT
  Age: 80 Year
  Sex: Male

DRUGS (21)
  1. MYCOPHENOLIC ACID [Concomitant]
     Indication: APLASIA PURE RED CELL
     Route: 065
     Dates: start: 20041028, end: 20050405
  2. METRONIDAZOLE [Concomitant]
     Indication: DIARRHOEA
     Route: 048
     Dates: start: 20050628
  3. HYDRALAZINE HYDROCHLORIDE [Concomitant]
     Indication: HYPERTENSION
     Route: 065
     Dates: start: 20050531
  4. DOXAZOSIN [Concomitant]
     Indication: DRUG USE FOR UNKNOWN INDICATION
     Route: 048
     Dates: start: 20050429, end: 20050502
  5. DEFERIPRONE [Concomitant]
     Indication: HYPERAESTHESIA
     Route: 048
     Dates: start: 20050204, end: 20050223
  6. CYCLOSPORINE [Concomitant]
     Indication: APLASIA PURE RED CELL
     Route: 065
     Dates: start: 20050405, end: 20050406
  7. CYCLOSPORINE [Concomitant]
     Route: 065
     Dates: start: 20050407, end: 20050505
  8. CIPROFLOXACIN [Concomitant]
     Indication: PNEUMONIA
     Dosage: UNK
     Route: 065
  9. ATENOLOL [Concomitant]
     Indication: DRUG USE FOR UNKNOWN INDICATION
     Route: 048
     Dates: start: 20030326, end: 20050531
  10. AMOXICILLIN [Concomitant]
     Indication: PNEUMONIA
     Dosage: UNK
     Route: 065
     Dates: start: 20050604
  11. AMLODIPINE [Concomitant]
     Indication: DRUG USE FOR UNKNOWN INDICATION
     Route: 065
     Dates: start: 20020624
  12. EPREX [Suspect]
     Indication: ANAEMIA
     Route: 058
     Dates: start: 20011001, end: 20020723
  13. AMITRIPTYLINE HCL [Concomitant]
     Indication: ASTHENIA
     Dosage: UNK
     Route: 048
     Dates: start: 20050114, end: 20050127
  14. PLAVIX [Suspect]
     Indication: ANGIOPATHY
     Route: 048
     Dates: start: 19990121
  15. ALFACALCIDOL [Concomitant]
     Indication: HYPERPARATHYROIDISM
     Route: 065
     Dates: start: 20010927
  16. FUROSEMIDE [Concomitant]
     Indication: DRUG USE FOR UNKNOWN INDICATION
     Dosage: UNK
     Route: 065
  17. VANCOMYCIN [Concomitant]
     Indication: DIARRHOEA
     Route: 048
  18. TRANDOLAPRIL [Concomitant]
     Indication: HYPERTENSION
     Route: 065
     Dates: start: 20050710
  19. SIMVASTATIN [Concomitant]
     Indication: HYPERCHOLESTEROLAEMIA
     Route: 065
     Dates: start: 19960502
  20. ACETAMINOPHEN [Concomitant]
     Indication: HEADACHE
     Route: 048
  21. OMEPRAZOLE [Concomitant]
     Indication: VOMITING
     Route: 048

REACTIONS (20)
  - ANAEMIA [None]
  - ANTI-ERYTHROPOIETIN ANTIBODY POSITIVE [None]
  - APLASIA PURE RED CELL [None]
  - ASTHENIA [None]
  - BLOOD CREATINE INCREASED [None]
  - BLOOD PRESSURE INCREASED [None]
  - BONE MARROW FAILURE [None]
  - CONFUSIONAL STATE [None]
  - DIARRHOEA [None]
  - DIZZINESS [None]
  - FATIGUE [None]
  - HAEMORRHOIDS [None]
  - HEADACHE [None]
  - HICCUPS [None]
  - HYPERAESTHESIA [None]
  - JOINT SWELLING [None]
  - PNEUMONIA [None]
  - TENDONITIS [None]
  - TREMOR [None]
  - VOMITING [None]
